FAERS Safety Report 24086652 (Version 4)
Quarter: 2024Q3

REPORT INFORMATION
  Report Type: Report from Study
  Country: US (occurrence: US)
  Receive Date: 20240713
  Receipt Date: 20240805
  Transmission Date: 20241016
  Serious: Yes (Death, Hospitalization)
  Sender: ROCHE
  Company Number: US-ROCHE-10000007903

PATIENT
  Age: 67 Year
  Sex: Female
  Weight: 86.18 kg

DRUGS (2)
  1. OCREVUS [Suspect]
     Active Substance: OCRELIZUMAB
     Indication: Relapsing multiple sclerosis
     Route: 065
     Dates: start: 20211203, end: 20240125
  2. OCREVUS [Suspect]
     Active Substance: OCRELIZUMAB
     Dosage: LAST DOSE: 11/JAN/2024
     Route: 065
     Dates: start: 20211130

REACTIONS (5)
  - Cardiac arrest [Fatal]
  - Pneumonia [Unknown]
  - Illness [Unknown]
  - COVID-19 [Recovering/Resolving]
  - Acute respiratory failure [Fatal]

NARRATIVE: CASE EVENT DATE: 20240525
